FAERS Safety Report 8208734 (Version 2)
Quarter: 2012Q4

REPORT INFORMATION
  Report Type: 
  Country: US (occurrence: US)
  Receive Date: 20111028
  Receipt Date: 20120910
  Transmission Date: 20130627
  Serious: Yes (Hospitalization)
  Sender: FDA-Public Use
  Company Number: US-US-EMD SERONO, INC.-7091069

PATIENT
  Age: 43 None
  Sex: Female

DRUGS (3)
  1. REBIF [Suspect]
     Indication: SECONDARY PROGRESSIVE MULTIPLE SCLEROSIS
     Route: 058
     Dates: end: 201205
  2. NEURONTIN [Concomitant]
  3. PSYCHIATRIC MEDICATIONS [Concomitant]
     Indication: DEPRESSION

REACTIONS (7)
  - Heart rate decreased [Unknown]
  - Blood pressure increased [Unknown]
  - Multiple sclerosis relapse [Unknown]
  - Anxiety [Unknown]
  - Diarrhoea [Not Recovered/Not Resolved]
  - Tremor [Unknown]
  - Neuralgia [Unknown]
